FAERS Safety Report 8345501-9 (Version None)
Quarter: 2012Q2

REPORT INFORMATION
  Report Type: 
  Country: None (occurrence: None)
  Receive Date: 20120508
  Receipt Date: 20120503
  Transmission Date: 20120825
  Serious: Yes (Hospitalization, Other)
  Sender: FDA-Public Use
  Company Number: US-ABBOTT-11P-163-0869590-00

PATIENT
  Age: 43 Year
  Sex: Male

DRUGS (11)
  1. EMTRICITABINE AND TENOFOVIR DISOPROXIL FUMARATE [Suspect]
  2. PENICILLIN [Concomitant]
     Indication: NEUROSYPHILIS
  3. CLINDAMYCIN [Concomitant]
     Indication: PRODUCT USED FOR UNKNOWN INDICATION
  4. SULFADIAZINE [Concomitant]
     Indication: PRODUCT USED FOR UNKNOWN INDICATION
  5. PYRIMETHAMINE W/SULFADOXINE [Concomitant]
     Indication: TOXOPLASMOSIS
  6. PYRIMETHAMINE W/SULFADOXINE [Concomitant]
     Indication: NEUROSYPHILIS
  7. ATAZANAVIR [Suspect]
     Indication: ANTIRETROVIRAL THERAPY
  8. PENICILLIN [Concomitant]
     Indication: TOXOPLASMOSIS
  9. RITONAVIR [Suspect]
     Indication: ANTIRETROVIRAL THERAPY
  10. RITONAVIR [Suspect]
  11. EMTRICITABINE AND TENOFOVIR DISOPROXIL FUMARATE [Suspect]
     Indication: ANTIRETROVIRAL THERAPY

REACTIONS (2)
  - VANISHING BILE DUCT SYNDROME [None]
  - HEPATITIS ACUTE [None]
